FAERS Safety Report 20129074 (Version 2)
Quarter: 2024Q2

REPORT INFORMATION
  Report Type: Report from Study
  Country: JP (occurrence: JP)
  Receive Date: 20211130
  Receipt Date: 20240614
  Transmission Date: 20240716
  Serious: Yes (Hospitalization, Other)
  Sender: FDA-Public Use
  Company Number: JP-ORPHANEU-2018006966

PATIENT

DRUGS (23)
  1. CARBAGLU [Suspect]
     Active Substance: CARGLUMIC ACID
     Indication: Metabolic acidosis
     Dosage: 400 MILLIGRAM, DAILY
     Dates: start: 20171013, end: 20171110
  2. METHYLCOBALAMIN [Concomitant]
     Active Substance: METHYLCOBALAMIN
     Indication: Methylmalonic acidaemia
     Dosage: 500 MICROGRAM
     Dates: start: 20171010
  3. HICEE [ASCORBIC ACID] [Concomitant]
     Indication: Methylmalonic acidaemia
     Dosage: 250 MILLIGRAM
     Dates: start: 20171010
  4. TOCOPHERYL NICOTINATE, D-.ALPHA. [Concomitant]
     Active Substance: TOCOPHERYL NICOTINATE, D-.ALPHA.
     Indication: Methylmalonic acidaemia
     Dosage: 30 MICROGRAM
     Dates: start: 20171010
  5. DIETARY SUPPLEMENT\UBIDECARENONE [Concomitant]
     Active Substance: DIETARY SUPPLEMENT\UBIDECARENONE
     Indication: Methylmalonic acidaemia
     Dosage: 10 MICROGRAM
     Dates: start: 20171010
  6. BENFOTIAMINE [Concomitant]
     Active Substance: BENFOTIAMINE
     Indication: Methylmalonic acidaemia
     Dosage: 25 MICROGRAM
     Dates: start: 20171010
  7. BIOTIN [Concomitant]
     Active Substance: BIOTIN
     Indication: Methylmalonic acidaemia
     Dosage: 1 MICROGRAM
     Dates: start: 20171010
  8. GM [Concomitant]
     Indication: Infection prophylaxis
     Dosage: 6.6 MG, TID (INJECTION)
     Dates: start: 20171010, end: 20171110
  9. BUPHENYL [Concomitant]
     Active Substance: SODIUM PHENYLBUTYRATE
     Indication: Disease complication
     Dosage: 600 MILLIGRAM
     Dates: start: 20171010, end: 20171012
  10. MICAFUNGIN SODIUM [Concomitant]
     Active Substance: MICAFUNGIN SODIUM
     Indication: Infection prophylaxis
     Dosage: 6 MG, (INJECTION)
     Dates: start: 20171012, end: 20171017
  11. SODIUM BICARBONATE [Concomitant]
     Active Substance: SODIUM BICARBONATE
     Indication: Infection prophylaxis
     Dosage: 1GRAM
     Route: 048
     Dates: start: 20171030, end: 20171101
  12. SODIUM BICARBONATE [Concomitant]
     Active Substance: SODIUM BICARBONATE
     Indication: Disease complication
     Dosage: 0.5 GRAM
     Route: 048
     Dates: start: 20171102
  13. VANCOMYCIN [Concomitant]
     Active Substance: VANCOMYCIN
     Indication: Infection prophylaxis
     Dosage: 0.55 MILLIGRAM (INJECTION)
     Dates: start: 20171012, end: 20171024
  14. ARGI U [ARGININE HYDROCHLORIDE] [Concomitant]
     Indication: Hyperlactacidaemia
     Dosage: 750 MILLIGRAM (INJECTION)
     Dates: start: 20171011, end: 20171023
  15. ARGI U [ARGININE HYDROCHLORIDE] [Concomitant]
     Indication: Disease complication
  16. MEROPENEM [Concomitant]
     Active Substance: MEROPENEM
     Indication: Infection prophylaxis
     Dosage: 40 MG, (INJECTION)
     Dates: start: 20171011, end: 20171017
  17. AMPICILLIN [Concomitant]
     Active Substance: AMPICILLIN
     Indication: Product used for unknown indication
     Dosage: 100 MG (INJECTION)
     Dates: start: 20171010, end: 20171016
  18. FRESMIN S [HYDROXOCOBALAMIN ACETATE] [Concomitant]
     Indication: Hyperlactacidaemia
     Dosage: 3 MILLIGRAM (INJECTION)
     Dates: start: 20171013, end: 20171101
  19. FRESMIN S [HYDROXOCOBALAMIN ACETATE] [Concomitant]
     Indication: Disease complication
  20. HYCOBAL [COBAMAMIDE] [Concomitant]
     Indication: Disease complication
     Dosage: 100 MICROGRAM
     Route: 048
     Dates: start: 20171030
  21. VITAMINS NOS [Concomitant]
     Active Substance: VITAMINS
     Indication: Methylmalonic acidaemia
     Dosage: 0.4 GRAM
     Dates: start: 20171022
  22. LEVOCARNITINE [Concomitant]
     Active Substance: LEVOCARNITINE
     Indication: Methylmalonic acidaemia
     Dosage: 600 MICROGRAM
     Dates: start: 20171102
  23. SODIUM BICARBONATE [Concomitant]
     Active Substance: SODIUM BICARBONATE
     Indication: Disease complication
     Dosage: 1 GRAM DAILY
     Dates: start: 20171102

REACTIONS (4)
  - Cholestasis [Recovering/Resolving]
  - Bacteraemia [Recovered/Resolved]
  - Anaemia [Not Recovered/Not Resolved]
  - Neutrophil count decreased [Recovering/Resolving]

NARRATIVE: CASE EVENT DATE: 20171017
